FAERS Safety Report 12248129 (Version 4)
Quarter: 2018Q2

REPORT INFORMATION
  Report Type: Spontaneous
  Country: FR (occurrence: FR)
  Receive Date: 20160408
  Receipt Date: 20180403
  Transmission Date: 20180711
  Serious: Yes (Death, Life-Threatening)
  Sender: FDA-Public Use
  Company Number: FR-BAUSCH-BL-2016-008270

PATIENT
  Age: 51 Year
  Sex: Female

DRUGS (13)
  1. DEXAMETHASONE. [Suspect]
     Active Substance: DEXAMETHASONE
     Indication: PLASMA CELL MYELOMA
     Dosage: PART OF REGIMEN (BORTEZOMIB PLUS THALIDOMIDE PLUS DEXAMETHASONE), 1-4 CYCLES, CYCLICAL
     Route: 065
  2. DEXAMETHASONE. [Suspect]
     Active Substance: DEXAMETHASONE
     Dosage: PART OF REGIMEN (BORTEZOMIB PLUS THALIDOMIDE PLUS DEXAMETHASONE), 5TH CYCLE (1), CYCLICAL
     Route: 065
  3. THALIDOMIDE [Suspect]
     Active Substance: THALIDOMIDE
     Indication: PLASMA CELL MYELOMA
     Dosage: PART OF REGIMEN (BORTEZOMIB PLUS THALIDOMIDE PLUS DEXAMETHASONE), CYCLICAL
     Route: 065
  4. LENALIDOMIDE [Suspect]
     Active Substance: LENALIDOMIDE
     Indication: PLASMA CELL MYELOMA
     Dosage: 25 MG/D, DAYS 1-21, CYCLICAL
     Route: 065
  5. MELPHALAN. [Concomitant]
     Active Substance: MELPHALAN
     Indication: PRODUCT USED FOR UNKNOWN INDICATION
     Dosage: HIGH-DOSE
  6. DOXORUBICIN [Suspect]
     Active Substance: DOXORUBICIN
     Indication: PLASMA CELL MYELOMA
     Dosage: PART OF REGIMEN(VINCRISTINE+DOXORUBICIN+DEXAMETHASONE), CYCLICAL 4 CYCLES
     Route: 065
  7. VINCRISTINE [Suspect]
     Active Substance: VINCRISTINE
     Indication: PLASMA CELL MYELOMA
     Dosage: 4 CYCLES, PART OF REGIMEN (VINCRISTINE PLUS DOXORUBICIN PLUS DEXAMETHASONE) (1), CYCLICAL
     Route: 065
  8. HYDROCORTISONE. [Concomitant]
     Active Substance: HYDROCORTISONE
     Indication: PLASMA CELL MYELOMA
     Route: 037
  9. CYTARABINE. [Concomitant]
     Active Substance: CYTARABINE
     Indication: PLASMA CELL MYELOMA
     Route: 037
  10. METHOTREXATE. [Concomitant]
     Active Substance: METHOTREXATE
     Indication: PLASMA CELL MYELOMA
     Route: 037
  11. DEXAMETHASONE. [Suspect]
     Active Substance: DEXAMETHASONE
     Dosage: PART OF REGIMEN (VINCRISTINE PLUS DOXORUBICIN PLUS DEXAMETHASONE), CYCLICAL
     Route: 065
  12. DEXAMETHASONE. [Suspect]
     Active Substance: DEXAMETHASONE
     Dosage: 40 MG/D, DAYS 1-4; DAYS 15-18, AS A PART OF LENALIDOMIDE PLUS DEXAMETHASONE
     Route: 065
  13. BORTEZOMIB [Suspect]
     Active Substance: BORTEZOMIB
     Indication: PLASMA CELL MYELOMA
     Dosage: PART OF REGIMEN (BORTEZOMIB PLUS THALIDOMIDE PLUS DEXAMETHASONE) (1), CYCLICAL
     Route: 065

REACTIONS (2)
  - Plasma cell myeloma recurrent [Fatal]
  - Drug ineffective [Fatal]
